FAERS Safety Report 4539339-8 (Version None)
Quarter: 2004Q4

REPORT INFORMATION
  Report Type: 
  Country: None (occurrence: None)
  Receive Date: 20041222
  Receipt Date: 20041209
  Transmission Date: 20050328
  Serious: Yes (Hospitalization)
  Sender: FDA-Public Use
  Company Number: 2004095874

PATIENT
  Age: 29 Year
  Sex: Female
  Weight: 50 kg

DRUGS (7)
  1. AZITHROMYCIN [Suspect]
     Indication: PHARYNGITIS
     Dosage: 500 MG (500 MG, 3 IN 1 D), ORAL
     Route: 048
     Dates: start: 20041102, end: 20041103
  2. CARBOCISTEINE [Suspect]
     Indication: PHARYNGITIS
     Dosage: 1500 MG (500 MG, 3 IN 1 D), ORAL
     Route: 048
     Dates: start: 20041101, end: 20041103
  3. NITRAZEPAM [Concomitant]
  4. TULOBUTEROL HYDROCHLORIDE [Concomitant]
  5. BROTIZOLAM [Concomitant]
  6. CHLORPROMAZINE [Concomitant]
  7. ZOLPIDEM TARTRATE [Concomitant]

REACTIONS (3)
  - CONDITION AGGRAVATED [None]
  - DRUG HYPERSENSITIVITY [None]
  - MOUTH ULCERATION [None]
